FAERS Safety Report 16469970 (Version 7)
Quarter: 2020Q3

REPORT INFORMATION
  Report Type: Report from Study
  Country: FR (occurrence: FR)
  Receive Date: 20190624
  Receipt Date: 20200528
  Transmission Date: 20201105
  Serious: Yes (Hospitalization)
  Sender: FDA-Public Use
  Company Number: FR-ROCHE-2340284

PATIENT
  Age: 75 Year
  Sex: Male
  Weight: 87.5 kg

DRUGS (20)
  1. AMBROXOL [Concomitant]
     Active Substance: AMBROXOL
     Indication: ASTHMA
     Route: 048
  2. FUROSEMIDE. [Concomitant]
     Active Substance: FUROSEMIDE
     Indication: OEDEMA
     Route: 042
     Dates: start: 20190602, end: 20190612
  3. DIFFU?K [Concomitant]
     Active Substance: POTASSIUM CHLORIDE
     Dosage: HYPOKALIEMIA
     Route: 048
     Dates: start: 20190626
  4. PLACEBO [Suspect]
     Active Substance: UNSPECIFIED INGREDIENT
     Indication: DIFFUSE LARGE B-CELL LYMPHOMA
     Dosage: DATE OF MOST RECENT DOSE OF BLINDED VINCRISTINE PRIOR TO SAE ONSET: 07 JUN 2019
     Route: 042
     Dates: start: 20190607
  5. PREDNISONE. [Suspect]
     Active Substance: PREDNISONE
     Indication: DIFFUSE LARGE B-CELL LYMPHOMA
     Dosage: DATE OF MOST RECENT DOSE OF PREDNISONE PRIOR TO SAE ONSET: 11 JUN 2019 (80 MG)?ON DAYS 1?5 OF EVERY
     Route: 048
     Dates: start: 20190607
  6. FLUTICASONE;SALMETEROL [Concomitant]
     Active Substance: FLUTICASONE PROPIONATE\SALMETEROL XINAFOATE
     Indication: ASTHMA
     Dosage: PUFF
     Route: 050
  7. CHLORHEXIDINE DIGLUCONATE [Concomitant]
     Active Substance: CHLORHEXIDINE
     Indication: PENILE ULCERATION
     Route: 061
     Dates: start: 20190607, end: 2019
  8. SALBUTAMOL [Concomitant]
     Active Substance: ALBUTEROL
     Indication: ASTHMA
     Route: 065
  9. FILGRASTIM [Concomitant]
     Active Substance: FILGRASTIM
     Route: 058
     Dates: start: 20190617, end: 20190624
  10. CYCLOPHOSPHAMIDE. [Suspect]
     Active Substance: CYCLOPHOSPHAMIDE
     Indication: DIFFUSE LARGE B-CELL LYMPHOMA
     Dosage: DATE OF MOST RECENT DOSE OF CYCLOPHOSPHAMIDE PRIOR TO SAE ONSET: 08/JUN/2019 (1480 MG)
     Route: 042
     Dates: start: 20190608
  11. POLATUZUMAB VEDOTIN. [Suspect]
     Active Substance: POLATUZUMAB VEDOTIN
     Indication: DIFFUSE LARGE B-CELL LYMPHOMA
     Dosage: DATE OF MOST RECENT DOSE (164 MG) OF BLINDED POLATUZUMAB VEDOTIN PRIOR TO SAE ONSET: 07 JUN 2019
     Route: 042
     Dates: start: 20190607
  12. RITUXIMAB. [Suspect]
     Active Substance: RITUXIMAB
     Indication: DIFFUSE LARGE B-CELL LYMPHOMA
     Dosage: DATE OF MOST RECENT DOSE OF RITUXIMAB PRIOR TO SAE ONSET: 07/JUN/2019 (740 MG)
     Route: 041
     Dates: start: 20190607
  13. DOXORUBICIN [Suspect]
     Active Substance: DOXORUBICIN
     Indication: DIFFUSE LARGE B-CELL LYMPHOMA
     Dosage: DATE OF MOST RECENT DOSE OF DOXORUBICIN PRIOR TO SAE ONSET: 08/JUN/2019 (99 MG)
     Route: 042
     Dates: start: 20190608
  14. TINZAPARIN [Concomitant]
     Active Substance: TINZAPARIN
     Indication: THROMBOSIS
     Route: 058
     Dates: start: 20190507, end: 20190906
  15. KARDEGIC [Concomitant]
     Active Substance: ASPIRIN DL-LYSINE
     Indication: THROMBOSIS PROPHYLAXIS
     Route: 048
  16. FUROSEMIDE. [Concomitant]
     Active Substance: FUROSEMIDE
     Route: 048
     Dates: start: 20190614, end: 201907
  17. DIFFU?K [Concomitant]
     Active Substance: POTASSIUM CHLORIDE
     Indication: HYPOKALAEMIA
     Dosage: TLS PREVENTION
     Route: 048
     Dates: start: 20190604, end: 20190611
  18. VALACICLOVIR [Concomitant]
     Active Substance: VALACYCLOVIR HYDROCHLORIDE
     Indication: INFECTION
     Route: 048
     Dates: start: 20190617
  19. VERAPAMIL [Concomitant]
     Active Substance: VERAPAMIL HYDROCHLORIDE
     Indication: HYPERTENSION
     Route: 048
  20. METOCLOPRAMIDE. [Concomitant]
     Active Substance: METOCLOPRAMIDE
     Indication: NAUSEA
     Route: 048
     Dates: start: 20190617

REACTIONS (2)
  - Febrile bone marrow aplasia [Recovered/Resolved]
  - Device related infection [Recovered/Resolved]

NARRATIVE: CASE EVENT DATE: 20190616
